FAERS Safety Report 19246777 (Version 1)
Quarter: 2021Q2

REPORT INFORMATION
  Report Type: Spontaneous
  Country: JP (occurrence: JP)
  Receive Date: 20210512
  Receipt Date: 20210512
  Transmission Date: 20210717
  Serious: Yes (Other)
  Sender: FDA-Public Use
  Company Number: JP-LUPIN PHARMACEUTICALS INC.-2021-06782

PATIENT
  Age: 82 Year
  Sex: Male

DRUGS (1)
  1. AZACITIDINE. [Suspect]
     Active Substance: AZACITIDINE
     Indication: MYELOID LEUKAEMIA
     Dosage: UNK (MAINTENANCE THERAPY)
     Route: 065

REACTIONS (2)
  - Drug ineffective [Unknown]
  - Leukocytosis [Unknown]
